FAERS Safety Report 5825269-8 (Version None)
Quarter: 2008Q3

REPORT INFORMATION
  Report Type: 
  Country: None (occurrence: None)
  Receive Date: 20080722
  Receipt Date: 20080710
  Transmission Date: 20090109
  Serious: Yes (Other)
  Sender: FDA-Public Use
  Company Number: TPA2008A00798

PATIENT
  Age: 71 Year
  Sex: Female
  Weight: 76.2043 kg

DRUGS (17)
  1. ACTOS [Suspect]
     Indication: TYPE 2 DIABETES MELLITUS
     Dosage: 45 MG, 1 IN 1 D, PER ORAL
     Route: 048
     Dates: start: 20000527, end: 20080401
  2. TOPROL-XL [Concomitant]
  3. AMARYL [Concomitant]
  4. AVALIDE [Concomitant]
  5. LANTUS [Concomitant]
  6. ARTHROTEC [Concomitant]
  7. LORTAB [Concomitant]
  8. ADVIL [Concomitant]
  9. JANUVIA(ORAL ANTIDIABETICS) [Concomitant]
  10. AMITRIPTLINE HYDROCHLORIDE TAB [Concomitant]
  11. ASPIRIN [Concomitant]
  12. VITAMIN E [Concomitant]
  13. CALCIUM(CALCIUM) [Concomitant]
  14. OSTEO-BIFLEX(GLUCOSAMINE HYDROCHLORIDE, CHONDROITIN SULFATE) [Concomitant]
  15. FOSAMAX [Concomitant]
  16. MOBIC [Concomitant]
  17. BEXTRA [Concomitant]

REACTIONS (29)
  - ABASIA [None]
  - ARTHRALGIA [None]
  - BLOOD ALKALINE PHOSPHATASE INCREASED [None]
  - CONTUSION [None]
  - COUGH [None]
  - DIABETES MELLITUS INADEQUATE CONTROL [None]
  - DISCOMFORT [None]
  - DYSURIA [None]
  - FALL [None]
  - FOOT FRACTURE [None]
  - GENERALISED OEDEMA [None]
  - HYPERCALCAEMIA [None]
  - HYPOGLYCAEMIA [None]
  - INTERVERTEBRAL DISC DEGENERATION [None]
  - JOINT SPRAIN [None]
  - MIGRAINE [None]
  - OSTEOMYELITIS [None]
  - OSTEOPENIA [None]
  - OSTEOPOROSIS [None]
  - PLANTAR FASCIITIS [None]
  - RIB FRACTURE [None]
  - ROAD TRAFFIC ACCIDENT [None]
  - STRESS FRACTURE [None]
  - THROAT IRRITATION [None]
  - TIBIA FRACTURE [None]
  - TRANSIENT ISCHAEMIC ATTACK [None]
  - URINARY TRACT INFECTION [None]
  - VISION BLURRED [None]
  - VISUAL IMPAIRMENT [None]
